FAERS Safety Report 5237235-4 (Version None)
Quarter: 2007Q1

REPORT INFORMATION
  Report Type: 
  Country: None (occurrence: None)
  Receive Date: 20070213
  Receipt Date: 20070208
  Transmission Date: 20070707
  Serious: Yes (Death, Hospitalization)
  Sender: FDA-Public Use
  Company Number: ZA-JNJFOC-20070202441

PATIENT
  Age: 27 Year
  Sex: Male
  Weight: 53 kg

DRUGS (4)
  1. REVELLEX [Suspect]
     Dosage: (3 DOSES ONLY)
     Route: 042
  2. REVELLEX [Suspect]
     Route: 042
  3. REVELLEX [Suspect]
     Indication: CROHN'S DISEASE
     Route: 042
  4. AZATHIOPRINE [Concomitant]
     Indication: CROHN'S DISEASE
     Route: 048

REACTIONS (1)
  - DISSEMINATED TUBERCULOSIS [None]
